FAERS Safety Report 9823579 (Version 1)
Quarter: 2014Q1

REPORT INFORMATION
  Report Type: Report from Study
  Country: BR (occurrence: BR)
  Receive Date: 20140116
  Receipt Date: 20140116
  Transmission Date: 20141002
  Serious: Yes (Death, Hospitalization, Other)
  Sender: FDA-Public Use
  Company Number: PHHY2014BR005089

PATIENT
  Sex: Male

DRUGS (7)
  1. EXELON PATCH [Suspect]
     Dosage: 9.5 MG (PATCH 10 CM2) DAILY
     Route: 062
  2. TREZOR [Concomitant]
     Dosage: UNK UKN, UNK
  3. ANCORON [Concomitant]
     Dosage: UNK UKN, UNK
  4. SELOZOK [Concomitant]
     Dosage: UNK UKN, UNK
  5. PROLOX [Concomitant]
     Dosage: UNK UKN, UNK
  6. DIPIRONE [Concomitant]
     Dosage: UNK UKN, UNK
  7. ASPIRINA PREVENT [Concomitant]
     Dosage: UNK UKN, UNK

REACTIONS (6)
  - Death [Fatal]
  - Pneumonia [Unknown]
  - Immunodeficiency [Unknown]
  - Pain [Unknown]
  - Influenza [Unknown]
  - Asthenia [Unknown]
